FAERS Safety Report 12051234 (Version 1)
Quarter: 2016Q1

REPORT INFORMATION
  Report Type: Spontaneous
  Country: None (occurrence: None)
  Receive Date: 20160208
  Receipt Date: 20160208
  Transmission Date: 20160526
  Serious: No
  Sender: FDA-Public Use
  Company Number: None

PATIENT
  Age: 53 Year
  Sex: Female
  Weight: 80.74 kg

DRUGS (9)
  1. LEVOTHYROXIDE [Concomitant]
  2. VITAMIN E [Concomitant]
     Active Substance: .ALPHA.-TOCOPHEROL
  3. CYMBALS [Concomitant]
  4. ESZOPICLONE. [Concomitant]
     Active Substance: ESZOPICLONE
  5. MULTIVITAMIN [Concomitant]
     Active Substance: VITAMINS
  6. OXYCODONE HCL 30 MG MALLINCKRODT [Suspect]
     Active Substance: OXYCODONE HYDROCHLORIDE
     Indication: BACK PAIN
     Dosage: 1/2 TO 1 PILL THREE TIMES DAILY TAKEN BY MOUTH
     Route: 048
  7. VITAMIN D [Concomitant]
     Active Substance: CHOLECALCIFEROL
  8. OXYCODONE HCL 30 MG MALLINCKRODT [Suspect]
     Active Substance: OXYCODONE HYDROCHLORIDE
     Indication: SPINAL FUSION SURGERY
     Dosage: 1/2 TO 1 PILL THREE TIMES DAILY TAKEN BY MOUTH
     Route: 048
  9. PRO TONIC [Concomitant]

REACTIONS (11)
  - Mood altered [None]
  - Drug ineffective [None]
  - Feeling abnormal [None]
  - Abdominal discomfort [None]
  - Depression [None]
  - Personality change [None]
  - Antisocial behaviour [None]
  - Drug effect decreased [None]
  - Irritability [None]
  - Quality of life decreased [None]
  - Abnormal behaviour [None]

NARRATIVE: CASE EVENT DATE: 20160205
